FAERS Safety Report 12846913 (Version 1)
Quarter: 2016Q4

REPORT INFORMATION
  Report Type: Spontaneous
  Country: IN (occurrence: IN)
  Receive Date: 20161014
  Receipt Date: 20161014
  Transmission Date: 20170207
  Serious: Yes (Death, Other)
  Sender: FDA-Public Use
  Company Number: IN-ASTELLAS-2016US040241

PATIENT
  Age: 64 Year
  Sex: Female

DRUGS (1)
  1. TARCEVA [Suspect]
     Active Substance: ERLOTINIB HYDROCHLORIDE
     Indication: GASTRIC CANCER
     Dosage: UNKNOWN DOSE, ONCE DAILY
     Route: 048

REACTIONS (2)
  - Neoplasm malignant [Fatal]
  - Off label use [Unknown]
